FAERS Safety Report 20415880 (Version 2)
Quarter: 2022Q1

REPORT INFORMATION
  Report Type: Spontaneous
  Country: US (occurrence: US)
  Receive Date: 20220202
  Receipt Date: 20220318
  Transmission Date: 20220423
  Serious: No
  Sender: FDA-Public Use
  Company Number: US-ELI_LILLY_AND_COMPANY-US202202000346

PATIENT
  Age: 72 Year
  Sex: Female

DRUGS (1)
  1. FORTEO [Suspect]
     Active Substance: TERIPARATIDE
     Indication: Product used for unknown indication
     Dosage: 20 UG, UNKNOWN
     Route: 065
     Dates: start: 20220112

REACTIONS (7)
  - Palpitations [Unknown]
  - Urinary tract infection [Recovered/Resolved]
  - Blood glucose increased [Unknown]
  - Osteoarthritis [Unknown]
  - Arthritis [Unknown]
  - Pain [Unknown]
  - Nausea [Not Recovered/Not Resolved]

NARRATIVE: CASE EVENT DATE: 20220216
